FAERS Safety Report 9391528 (Version 2)
Quarter: 2014Q4

REPORT INFORMATION
  Report Type: Spontaneous
  Country: US (occurrence: None)
  Receive Date: 20130705
  Receipt Date: 20141014
  Transmission Date: 20150529
  Serious: Yes (Life-Threatening, Other)
  Sender: FDA-Public Use
  Company Number: 2013P1010736

PATIENT
  Age: 64 Year
  Sex: Male

DRUGS (3)
  1. AMIODARONE [Suspect]
     Active Substance: AMIODARONE
     Indication: ARRHYTHMIA PROPHYLAXIS
     Route: 042
  2. AMIODARONE [Suspect]
     Active Substance: AMIODARONE
     Route: 042
  3. LIDOCAINE. [Concomitant]
     Active Substance: LIDOCAINE

REACTIONS (4)
  - Cardiac arrest [None]
  - Electrocardiogram abnormal [None]
  - Ventricular fibrillation [None]
  - Ventricular tachycardia [None]
